FAERS Safety Report 16551125 (Version 3)
Quarter: 2019Q3

REPORT INFORMATION
  Report Type: Report from Study
  Country: US (occurrence: US)
  Receive Date: 20190710
  Receipt Date: 20190828
  Transmission Date: 20191004
  Serious: Yes (Disabling)
  Sender: FDA-Public Use
  Company Number: US-ROCHE-2349117

PATIENT
  Age: 51 Year
  Sex: Male

DRUGS (4)
  1. ERIVEDGE [Suspect]
     Active Substance: VISMODEGIB
     Indication: BASAL CELL CARCINOMA
     Dosage: ON FOR A WEEK AND THEN OFF FOR A WEEK
     Route: 048
     Dates: start: 20190304, end: 201905
  2. ERIVEDGE [Suspect]
     Active Substance: VISMODEGIB
     Route: 065
  3. ERIVEDGE [Suspect]
     Active Substance: VISMODEGIB
     Indication: BASAL CELL CARCINOMA
     Route: 048
     Dates: start: 20180403, end: 20190304
  4. ERIVEDGE [Suspect]
     Active Substance: VISMODEGIB
     Dosage: TAKING CONTINUOUSLY: NO WEEK BREAK IN THERAPY
     Route: 048
     Dates: start: 201905

REACTIONS (8)
  - Muscle spasms [Recovered/Resolved]
  - Therapy non-responder [Unknown]
  - Intentional product use issue [Unknown]
  - Basal cell carcinoma [Not Recovered/Not Resolved]
  - Nausea [Recovered/Resolved]
  - Abdominal pain upper [Recovered/Resolved]
  - Off label use [Unknown]
  - Product quality issue [Unknown]

NARRATIVE: CASE EVENT DATE: 20181221
